FAERS Safety Report 5953392-6 (Version None)
Quarter: 2008Q4

REPORT INFORMATION
  Report Type: 
  Country: None (occurrence: None)
  Receive Date: 20081031
  Receipt Date: 20080603
  Transmission Date: 20090506
  Serious: No
  Sender: FDA-Public Use
  Company Number: 2008PV035615

PATIENT
  Age: 50 Year
  Sex: Male

DRUGS (4)
  1. SYMLIN [Suspect]
     Indication: TYPE 2 DIABETES MELLITUS
     Dosage: 120 MCG; TID; SC
     Route: 058
     Dates: start: 20080603
  2. SYMLIN [Suspect]
     Indication: TYPE 2 DIABETES MELLITUS
     Dosage: 120 MCG; TID; SC
     Route: 058
     Dates: start: 20080201, end: 20080602
  3. METFORMIN HCL [Concomitant]
  4. NOVOLOG [Concomitant]

REACTIONS (3)
  - DECREASED APPETITE [None]
  - DRUG PRESCRIBING ERROR [None]
  - NAUSEA [None]
